FAERS Safety Report 12570030 (Version 6)
Quarter: 2021Q1

REPORT INFORMATION
  Report Type: Spontaneous
  Country: US (occurrence: US)
  Receive Date: 20160719
  Receipt Date: 20210104
  Transmission Date: 20210419
  Serious: No
  Sender: FDA-Public Use
  Company Number: US-PFIZER INC-2016344180

PATIENT
  Age: 63 Year
  Sex: Female
  Weight: 71 kg

DRUGS (6)
  1. LYRICA [Suspect]
     Active Substance: PREGABALIN
     Indication: PAIN IN EXTREMITY
     Dosage: 75 MG, 3X/DAY
     Route: 048
     Dates: start: 201606
  2. ATORVASTATIN [Concomitant]
     Active Substance: ATORVASTATIN
     Indication: BLOOD CHOLESTEROL ABNORMAL
     Dosage: 10 MG, 1X/DAY
     Dates: start: 2013
  3. ATORVASTATIN [Concomitant]
     Active Substance: ATORVASTATIN
     Dosage: 10 MG, ALTERNATE DAY
  4. LYRICA [Suspect]
     Active Substance: PREGABALIN
     Dosage: 75 MG
  5. LYRICA [Suspect]
     Active Substance: PREGABALIN
     Dosage: 75 MG, AS NEEDED, (1 CAPSULE EVERY 8 HOURS AS NEEDED)
     Route: 048
  6. LEVOTHYROXINE. [Concomitant]
     Active Substance: LEVOTHYROXINE
     Indication: THYROID DISORDER
     Dosage: 0.88 UG, 1X/DAY

REACTIONS (11)
  - Therapeutic product effect incomplete [Unknown]
  - Dysphagia [Not Recovered/Not Resolved]
  - Weight increased [Not Recovered/Not Resolved]
  - Paraesthesia [Unknown]
  - Intentional product misuse [Unknown]
  - Increased appetite [Not Recovered/Not Resolved]
  - Burning sensation [Unknown]
  - Odynophagia [Not Recovered/Not Resolved]
  - Restlessness [Unknown]
  - Product dispensing error [Unknown]
  - Drug tolerance [Unknown]

NARRATIVE: CASE EVENT DATE: 2016
